FAERS Safety Report 19961493 (Version 2)
Quarter: 2022Q1

REPORT INFORMATION
  Report Type: Spontaneous
  Country: US (occurrence: US)
  Receive Date: 20211017
  Receipt Date: 20220321
  Transmission Date: 20220423
  Serious: Yes (Other)
  Sender: FDA-Public Use
  Company Number: US-TEVA-2021-US-1964980

PATIENT
  Age: 61 Year
  Sex: Female
  Weight: 106.59 kg

DRUGS (4)
  1. AJOVY [Suspect]
     Active Substance: FREMANEZUMAB-VFRM
     Indication: Migraine
     Route: 065
     Dates: end: 2021
  2. AJOVY [Suspect]
     Active Substance: FREMANEZUMAB-VFRM
  3. ROSUVASTATIN [Concomitant]
     Active Substance: ROSUVASTATIN
  4. LISINOPRIL [Concomitant]
     Active Substance: LISINOPRIL

REACTIONS (2)
  - Pneumonia [Recovering/Resolving]
  - Upper respiratory tract infection [Recovering/Resolving]

NARRATIVE: CASE EVENT DATE: 20211001
